FAERS Safety Report 8809905 (Version 1)
Quarter: 2012Q4

REPORT INFORMATION
  Report Type: 
  Country: US (occurrence: US)
  Receive Date: 20120926
  Receipt Date: 20120926
  Transmission Date: 20130627
  Serious: Yes (Hospitalization, Disabling, Other)
  Sender: FDA-Public Use
  Company Number: US-ELI_LILLY_AND_COMPANY-US201209006644

PATIENT
  Sex: Male

DRUGS (2)
  1. HUMULIN NPH [Suspect]
     Indication: DIABETES MELLITUS
     Dosage: 50 u, each morning
     Dates: start: 1982
  2. HUMULIN REGULAR [Suspect]
     Indication: DIABETES MELLITUS
     Dosage: UNK UNK, prn
     Dates: start: 1982

REACTIONS (8)
  - Respiratory fume inhalation disorder [Recovered/Resolved]
  - Lung infection [Recovered/Resolved]
  - Accident at work [Unknown]
  - Nerve injury [Not Recovered/Not Resolved]
  - Blood glucose increased [Unknown]
  - Neck injury [Unknown]
  - Joint injury [Unknown]
  - Back injury [Unknown]
